FAERS Safety Report 8573786-2 (Version None)
Quarter: 2012Q3

REPORT INFORMATION
  Report Type: 
  Country: None (occurrence: None)
  Receive Date: 20120806
  Receipt Date: 20120803
  Transmission Date: 20120928
  Serious: Yes (Other)
  Sender: FDA-Public Use
  Company Number: DE-GLAXOSMITHKLINE-D0076075A

PATIENT
  Sex: Female

DRUGS (1)
  1. LAPATINIB [Suspect]
     Route: 048

REACTIONS (16)
  - COUGH [None]
  - SENSORY DISTURBANCE [None]
  - NASAL DISCOMFORT [None]
  - BURNING SENSATION [None]
  - DEHYDRATION [None]
  - INCREASED UPPER AIRWAY SECRETION [None]
  - SKIN FISSURES [None]
  - MUSCLE SPASMS [None]
  - FEELING HOT [None]
  - HAEMORRHAGE [None]
  - EYE SWELLING [None]
  - ABDOMINAL PAIN UPPER [None]
  - DYSPHONIA [None]
  - DIARRHOEA [None]
  - VOCAL CORD DISORDER [None]
  - GENITAL EROSION [None]
